FAERS Safety Report 16240582 (Version 1)
Quarter: 2019Q2

REPORT INFORMATION
  Report Type: Spontaneous
  Country: SE (occurrence: SE)
  Receive Date: 20190425
  Receipt Date: 20190425
  Transmission Date: 20190711
  Serious: Yes (Death, Other)
  Sender: FDA-Public Use
  Company Number: SE-MYLANLABS-2019M1038415

PATIENT
  Age: 20 Year
  Sex: Male
  Weight: 65 kg

DRUGS (1)
  1. LERGIGAN (PROMETHAZINE HYDROCHLORIDE) [Suspect]
     Active Substance: PROMETHAZINE HYDROCHLORIDE
     Indication: ANXIETY
     Dosage: UNK

REACTIONS (2)
  - Cardiac arrest [Fatal]
  - Suicidal ideation [Unknown]

NARRATIVE: CASE EVENT DATE: 2016
